FAERS Safety Report 26005343 (Version 1)
Quarter: 2025Q4

REPORT INFORMATION
  Report Type: Report from Study
  Country: ZA (occurrence: ZA)
  Receive Date: 20251106
  Receipt Date: 20251106
  Transmission Date: 20260118
  Serious: Yes (Hospitalization, Other)
  Sender: ALEXION PHARMACEUTICALS
  Company Number: ZA-AstraZeneca-CH-00971576A

PATIENT
  Age: 69 Year
  Sex: Female

DRUGS (2)
  1. BUDESONIDE\FORMOTEROL [Suspect]
     Active Substance: BUDESONIDE\FORMOTEROL
     Indication: Asthma
     Dosage: STRENGTH: 160/4.5MICROGRAM, 120 MICROGRAM
  2. MACRODANTIN [Concomitant]
     Active Substance: NITROFURANTOIN
     Indication: Urinary tract infection
     Dosage: 100 MILLIGRAM

REACTIONS (8)
  - Neoplasm malignant [Unknown]
  - Osteoporosis [Unknown]
  - Cholecystitis infective [Unknown]
  - Illness [Unknown]
  - Asthenia [Unknown]
  - Gait inability [Unknown]
  - Urinary incontinence [Unknown]
  - Tremor [Unknown]
